FAERS Safety Report 9668652 (Version 2)
Quarter: 2013Q4

REPORT INFORMATION
  Report Type: Report from Study
  Country: US (occurrence: US)
  Receive Date: 20131105
  Receipt Date: 20131105
  Transmission Date: 20140711
  Serious: Yes (Other)
  Sender: FDA-Public Use
  Company Number: US-ROCHE-1283395

PATIENT
  Age: 50 Year
  Sex: Female

DRUGS (13)
  1. LUCENTIS [Suspect]
     Indication: DIABETIC RETINAL OEDEMA
     Route: 050
     Dates: start: 20130920
  2. AVASTIN [Suspect]
     Indication: PRODUCT USED FOR UNKNOWN INDICATION
     Route: 065
  3. LEVEMIR [Concomitant]
  4. LEVOTHYROIDISM (UNK INGREDIENTS) [Concomitant]
  5. METFORMIN [Concomitant]
     Indication: DIABETES MELLITUS
  6. NOVOLOG [Concomitant]
     Indication: DIABETES MELLITUS
  7. COZAAR [Concomitant]
  8. LOSARTAN [Concomitant]
  9. PANTOPRAZOLE [Concomitant]
  10. GABAPENTIN [Concomitant]
  11. PLAVIX [Concomitant]
     Indication: ANTICOAGULANT THERAPY
  12. ATORVASTATIN [Concomitant]
  13. DEXILANT [Concomitant]

REACTIONS (4)
  - Metamorphopsia [Recovering/Resolving]
  - Photopsia [Unknown]
  - Visual impairment [Unknown]
  - Blood glucose increased [Unknown]
